FAERS Safety Report 6030060-6 (Version None)
Quarter: 2009Q1

REPORT INFORMATION
  Report Type: 
  Country: None (occurrence: None)
  Receive Date: 20090105
  Receipt Date: 20090105
  Transmission Date: 20090719
  Serious: No
  Sender: FDA-Public Use
  Company Number: None

PATIENT
  Sex: Female
  Weight: 65 kg

DRUGS (4)
  1. CYMBALTA [Suspect]
     Dosage: 30MG CAPSULE DR 30 MG AS DIRECTED
     Route: 048
     Dates: start: 20080904, end: 20090105
  2. DESOGESTREL AND ETHINYL ESTRADIOL [Concomitant]
  3. CLONAZEPAM [Concomitant]
  4. FLAGYL [Concomitant]

REACTIONS (1)
  - GASTROINTESTINAL HAEMORRHAGE [None]
